FAERS Safety Report 13746065 (Version 2)
Quarter: 2017Q3

REPORT INFORMATION
  Report Type: Spontaneous
  Country: FR (occurrence: FR)
  Receive Date: 20170712
  Receipt Date: 20170809
  Transmission Date: 20171127
  Serious: Yes (Other)
  Sender: FDA-Public Use
  Company Number: FR-BAYER-2017-131417

PATIENT
  Age: 43 Year
  Sex: Female

DRUGS (1)
  1. MIRENA [Suspect]
     Active Substance: LEVONORGESTREL
     Indication: CONTRACEPTION
     Dosage: 20 MCG/24HR, CONT
     Route: 015
     Dates: start: 20150409, end: 20170620

REACTIONS (11)
  - Affective disorder [Recovered/Resolved]
  - Alopecia [Recovered/Resolved]
  - Pain [Recovered/Resolved]
  - Ovarian cyst [Not Recovered/Not Resolved]
  - Aggression [Recovered/Resolved]
  - Depression [Recovered/Resolved]
  - Blood cholesterol [Not Recovered/Not Resolved]
  - Breast pain [Recovered/Resolved]
  - Pelvic pain [Not Recovered/Not Resolved]
  - Abnormal weight gain [Recovering/Resolving]
  - Asthenia [Not Recovered/Not Resolved]

NARRATIVE: CASE EVENT DATE: 201601
